FAERS Safety Report 8827464 (Version 1)
Quarter: 2012Q4

REPORT INFORMATION
  Report Type: Report from Study
  Country: CA (occurrence: CA)
  Receive Date: 20121005
  Receipt Date: 20121005
  Transmission Date: 20130627
  Serious: Yes (Other)
  Sender: FDA-Public Use
  Company Number: CA-ROCHE-1104758

PATIENT
  Age: 85 None
  Sex: Female
  Weight: 49.94 kg

DRUGS (8)
  1. ROACTEMRA [Suspect]
     Indication: RHEUMATOID ARTHRITIS
     Route: 042
     Dates: start: 20110323
  2. NABUMETONE [Concomitant]
  3. SYNTHROID [Concomitant]
  4. ACTONEL [Concomitant]
  5. PANTOLOC [Concomitant]
  6. ASA [Concomitant]
  7. GABAPENTIN [Concomitant]
  8. ATASOL [Concomitant]

REACTIONS (12)
  - Cataract [Unknown]
  - Poor venous access [Not Recovered/Not Resolved]
  - Rectal haemorrhage [Recovered/Resolved]
  - Arthralgia [Unknown]
  - Arthritis [Unknown]
  - Pain in extremity [Unknown]
  - Oedema peripheral [Unknown]
  - Gait disturbance [Unknown]
  - Rhinorrhoea [Unknown]
  - Eye pruritus [Unknown]
  - Pain in extremity [Unknown]
  - Inflammation [Unknown]
